FAERS Safety Report 7334075-7 (Version None)
Quarter: 2011Q1

REPORT INFORMATION
  Report Type: 
  Country: None (occurrence: None)
  Receive Date: 20110307
  Receipt Date: 20110223
  Transmission Date: 20110831
  Serious: No
  Sender: FDA-Public Use
  Company Number: US-BAYER-2011-017887

PATIENT
  Sex: Female

DRUGS (1)
  1. MIRENA [Suspect]
     Route: 015

REACTIONS (3)
  - ABDOMINAL PAIN [None]
  - DYSURIA [None]
  - PREGNANCY WITH CONTRACEPTIVE DEVICE [None]
